FAERS Safety Report 6143662-3 (Version None)
Quarter: 2009Q2

REPORT INFORMATION
  Report Type: 
  Country: None (occurrence: None)
  Receive Date: 20090403
  Receipt Date: 20090326
  Transmission Date: 20091009
  Serious: Yes (Other)
  Sender: FDA-Public Use
  Company Number: US-GILEAD-2009-0021140

PATIENT
  Sex: Female
  Weight: 61.971 kg

DRUGS (12)
  1. AMBRISENTAN [Suspect]
     Indication: PULMONARY ARTERIAL HYPERTENSION
     Route: 048
     Dates: start: 20070301, end: 20090326
  2. AMBRISENTAN [Suspect]
     Route: 048
     Dates: start: 20090326
  3. REMODULIN [Concomitant]
     Indication: PULMONARY HYPERTENSION
     Dates: start: 20071105
  4. REVATIO [Concomitant]
     Indication: PULMONARY HYPERTENSION
     Dates: start: 20070615
  5. METOPROLOL [Concomitant]
     Indication: HYPERTENSION
     Dates: start: 20070827
  6. FUROSEMIDE [Concomitant]
     Indication: RENAL FAILURE CHRONIC
     Dates: start: 20070601
  7. SPIRIVA [Concomitant]
     Indication: ASTHMA
     Dates: start: 20070605
  8. SYMBICORT [Concomitant]
     Indication: CHRONIC OBSTRUCTIVE PULMONARY DISEASE
     Dates: start: 20080212
  9. VICODIN [Concomitant]
     Indication: ARTHRITIS
     Dates: start: 20070101
  10. ALLOPURINOL [Concomitant]
     Indication: GOUT
     Dates: start: 20070605
  11. PROTONIX [Concomitant]
     Dates: start: 20070530
  12. IRON [Concomitant]
     Indication: SUPPLEMENTATION THERAPY
     Dates: start: 20070820

REACTIONS (1)
  - LIVER FUNCTION TEST ABNORMAL [None]
